FAERS Safety Report 15663684 (Version 1)
Quarter: 2018Q4

REPORT INFORMATION
  Report Type: Spontaneous
  Country: US (occurrence: US)
  Receive Date: 20181128
  Receipt Date: 20181128
  Transmission Date: 20190205
  Serious: Yes (Hospitalization, Other)
  Sender: FDA-Public Use
  Company Number: US-NAPPMUNDI-USA-2018-0145283

PATIENT
  Age: 31 Year
  Sex: Female

DRUGS (6)
  1. OXYCODONE HYDROCHLORIDE (SIMILAR TO NDA 22-272) [Suspect]
     Active Substance: OXYCODONE HYDROCHLORIDE
     Indication: PRODUCT USED FOR UNKNOWN INDICATION
     Route: 048
  2. ALCOHOL. [Suspect]
     Active Substance: ALCOHOL
     Indication: PRODUCT USED FOR UNKNOWN INDICATION
     Route: 048
  3. SUBOXONE [Suspect]
     Active Substance: BUPRENORPHINE HYDROCHLORIDE\NALOXONE HYDROCHLORIDE
     Indication: DRUG DEPENDENCE
     Dosage: 8 MG, DAILY
     Route: 060
  4. HYDROCODONE BITARTRATE (SIMILAR TO NDA 206627) [Suspect]
     Active Substance: HYDROCODONE BITARTRATE
     Indication: PRODUCT USED FOR UNKNOWN INDICATION
     Route: 048
  5. LAMICTAL [Concomitant]
     Active Substance: LAMOTRIGINE
     Indication: AFFECTIVE DISORDER
     Route: 065
  6. SEROQUEL [Concomitant]
     Active Substance: QUETIAPINE FUMARATE
     Indication: INSOMNIA
     Route: 065

REACTIONS (15)
  - Substance abuse [Unknown]
  - Hot flush [Unknown]
  - Pain [Unknown]
  - Mental disorder [Unknown]
  - Anxiety [Unknown]
  - Depression [Unknown]
  - Abnormal dreams [Unknown]
  - Hyperhidrosis [Unknown]
  - Back pain [Unknown]
  - Feeling cold [Unknown]
  - Feelings of worthlessness [Unknown]
  - Neck pain [Unknown]
  - Bone pain [Unknown]
  - Insomnia [Unknown]
  - Anger [Unknown]

NARRATIVE: CASE EVENT DATE: 201709
